FAERS Safety Report 16748376 (Version 2)
Quarter: 2020Q1

REPORT INFORMATION
  Report Type: Spontaneous
  Country: JP (occurrence: JP)
  Receive Date: 20190828
  Receipt Date: 20200108
  Transmission Date: 20200409
  Serious: Yes (Hospitalization)
  Sender: FDA-Public Use
  Company Number: JP-ROCHE-2394522

PATIENT
  Age: 84 Year
  Sex: Female

DRUGS (12)
  1. MIYA-BM [Concomitant]
     Active Substance: CLOSTRIDIUM BUTYRICUM SPORES STRAIN M-55
     Route: 048
  2. ROZEREM [Concomitant]
     Active Substance: RAMELTEON
     Route: 048
  3. RISPERDAL [Concomitant]
     Active Substance: RISPERIDONE
     Route: 048
  4. DEPAS [ETIZOLAM] [Concomitant]
     Active Substance: ETIZOLAM
     Route: 048
  5. EDIROL [Concomitant]
     Active Substance: ELDECALCITOL
     Route: 048
  6. AERSOLIN D1 [Concomitant]
     Route: 048
  7. TRAMAL [Concomitant]
     Active Substance: TRAMADOL
     Route: 048
  8. RIVASTACH [Concomitant]
     Active Substance: RIVASTIGMINE
     Route: 062
  9. ATELEC [Concomitant]
     Active Substance: CILNIDIPINE
     Route: 048
  10. JANUVIA [Concomitant]
     Active Substance: SITAGLIPTIN PHOSPHATE
     Route: 048
  11. ACTEMRA [Suspect]
     Active Substance: TOCILIZUMAB
     Indication: RHEUMATOID ARTHRITIS
     Route: 058
  12. SENNOSIDES A+B [Concomitant]
     Active Substance: SENNOSIDES A AND B
     Route: 048

REACTIONS (1)
  - Appendicitis perforated [Recovered/Resolved]

NARRATIVE: CASE EVENT DATE: 20190814
